FAERS Safety Report 8517177 (Version 5)
Quarter: 2015Q2

REPORT INFORMATION
  Report Type: Spontaneous
  Country: US (occurrence: US)
  Receive Date: 20120417
  Receipt Date: 20150403
  Transmission Date: 20150821
  Serious: Yes (Other)
  Sender: FDA-Public Use
  Company Number: US-ASTRAZENECA-2011SE49073

PATIENT
  Age: 806 Month
  Sex: Male
  Weight: 101.6 kg

DRUGS (17)
  1. NEXIUM [Suspect]
     Active Substance: ESOMEPRAZOLE MAGNESIUM
     Indication: BARRETT^S OESOPHAGUS
     Route: 048
  2. MELOXICAM. [Concomitant]
     Active Substance: MELOXICAM
     Indication: PAIN
     Dates: start: 2006
  3. NEXIUM [Suspect]
     Active Substance: ESOMEPRAZOLE MAGNESIUM
     Indication: GASTROOESOPHAGEAL REFLUX DISEASE
     Dosage: NEXIUM TWICE A DAY BUT 3 WEEKS AGO HE BEGAN TO DOUBLE UP ON HIS DOSE
     Route: 048
     Dates: start: 201503
  4. NEXIUM [Suspect]
     Active Substance: ESOMEPRAZOLE MAGNESIUM
     Indication: GASTROOESOPHAGEAL REFLUX DISEASE
     Route: 048
     Dates: end: 2013
  5. NEXIUM [Suspect]
     Active Substance: ESOMEPRAZOLE MAGNESIUM
     Indication: BARRETT^S OESOPHAGUS
     Dosage: NEXIUM TWICE A DAY BUT 3 WEEKS AGO HE BEGAN TO DOUBLE UP ON HIS DOSE
     Route: 048
     Dates: start: 201503
  6. CRESTOR [Suspect]
     Active Substance: ROSUVASTATIN CALCIUM
     Indication: BLOOD CHOLESTEROL ABNORMAL
     Route: 048
  7. NEXIUM [Suspect]
     Active Substance: ESOMEPRAZOLE MAGNESIUM
     Indication: BARRETT^S OESOPHAGUS
     Route: 048
     Dates: end: 2013
  8. NEXIUM [Suspect]
     Active Substance: ESOMEPRAZOLE MAGNESIUM
     Indication: GASTROOESOPHAGEAL REFLUX DISEASE
     Route: 048
  9. ASPIRIN. [Concomitant]
     Active Substance: ASPIRIN
     Indication: ANTICOAGULANT THERAPY
     Dates: start: 2003
  10. NEXIUM [Suspect]
     Active Substance: ESOMEPRAZOLE MAGNESIUM
     Indication: GASTROOESOPHAGEAL REFLUX DISEASE
     Route: 048
  11. METOPROLOL TARTRATE. [Concomitant]
     Active Substance: METOPROLOL TARTRATE
     Indication: BLOOD PRESSURE
     Dates: start: 2012
  12. HYDROCODONE [Concomitant]
     Active Substance: HYDROCODONE
     Indication: PAIN
     Dosage: 5-325MG PRN
     Dates: start: 2006
  13. CRESTOR [Suspect]
     Active Substance: ROSUVASTATIN CALCIUM
     Indication: BLOOD CHOLESTEROL ABNORMAL
     Route: 048
  14. AMLODIPINE DESYLATE [Concomitant]
     Indication: BLOOD PRESSURE
     Dates: start: 2012
  15. ALPRAZOLAM. [Concomitant]
     Active Substance: ALPRAZOLAM
     Indication: ANXIOLYTIC THERAPY
     Dates: start: 2013
  16. NEXIUM [Suspect]
     Active Substance: ESOMEPRAZOLE MAGNESIUM
     Indication: BARRETT^S OESOPHAGUS
     Route: 048
  17. STRYCEL DASATINIB [Concomitant]
     Indication: CHEMOTHERAPY

REACTIONS (14)
  - Theft [Unknown]
  - Inflammation [Unknown]
  - Pain [Unknown]
  - Intentional product misuse [Unknown]
  - Abdominal discomfort [Unknown]
  - Prescribed overdose [Unknown]
  - Blindness [Unknown]
  - Off label use [Unknown]
  - Hypoacusis [Unknown]
  - Oesophageal dysplasia [Unknown]
  - Chronic myeloid leukaemia [Unknown]
  - Oropharyngeal pain [Unknown]
  - Hyperchlorhydria [Unknown]
  - Fatigue [Unknown]

NARRATIVE: CASE EVENT DATE: 2006
